FAERS Safety Report 5058421-2 (Version None)
Quarter: 2006Q2

REPORT INFORMATION
  Report Type: 
  Country: None (occurrence: None)
  Receive Date: 20060628
  Receipt Date: 20050712
  Transmission Date: 20061013
  Serious: Yes (Hospitalization)
  Sender: FDA-Public Use
  Company Number: 410683

PATIENT
  Age: 35 Year
  Sex: Female

DRUGS (4)
  1. KLONOPIN [Suspect]
     Indication: ANXIETY
     Route: 065
  2. LEXAPRO [Concomitant]
  3. ABILIFY [Concomitant]
  4. STRATTERA [Concomitant]

REACTIONS (2)
  - NO ADVERSE EFFECT [None]
  - OVERDOSE [None]
